FAERS Safety Report 7009524-4 (Version None)
Quarter: 2010Q3

REPORT INFORMATION
  Report Type: 
  Country: None (occurrence: None)
  Receive Date: 20100923
  Receipt Date: 20100914
  Transmission Date: 20110219
  Serious: Yes (Hospitalization)
  Sender: FDA-Public Use
  Company Number: PHHY2010FR62306

PATIENT
  Age: 78 Year
  Sex: Female

DRUGS (8)
  1. RASILEZ [Suspect]
     Indication: HYPERTENSION
     Dosage: 300 MG DAILY QD
     Dates: start: 20100701
  2. TAREG [Suspect]
     Indication: HYPERTENSION
  3. INDAPAMIDE [Concomitant]
  4. PREDNISONE [Concomitant]
     Indication: TEMPORAL ARTERITIS
  5. PREVISCAN [Concomitant]
     Indication: THROMBOSIS
  6. BISOPROLOL FUMARATE [Concomitant]
  7. AMIODARONE HCL [Concomitant]
  8. LERCANIDIPINE [Concomitant]

REACTIONS (2)
  - FEELING ABNORMAL [None]
  - RENAL FAILURE [None]
